FAERS Safety Report 18714993 (Version 6)
Quarter: 2022Q1

REPORT INFORMATION
  Report Type: Report from Study
  Country: JP (occurrence: JP)
  Receive Date: 20210107
  Receipt Date: 20220303
  Transmission Date: 20220424
  Serious: Yes (Hospitalization)
  Sender: FDA-Public Use
  Company Number: JP-SAKK-2020SA376812AA

PATIENT
  Age: 52 Year
  Sex: Male
  Weight: 68.1 kg

DRUGS (29)
  1. DOCETAXEL [Suspect]
     Active Substance: DOCETAXEL
     Indication: Lung adenocarcinoma
     Dosage: 132.75 MG
     Route: 041
     Dates: start: 20201224, end: 20201224
  2. DOCETAXEL [Suspect]
     Active Substance: DOCETAXEL
     Dosage: 136.2 MG
     Route: 041
     Dates: start: 20200716, end: 20200716
  3. DOCETAXEL [Suspect]
     Active Substance: DOCETAXEL
     Dosage: 136.2 MG
     Route: 041
     Dates: start: 20200806, end: 20200806
  4. DOCETAXEL [Suspect]
     Active Substance: DOCETAXEL
     Dosage: 136.2 MG
     Route: 041
     Dates: start: 20200827, end: 20200827
  5. DOCETAXEL [Suspect]
     Active Substance: DOCETAXEL
     Dosage: 136.2 MG
     Route: 041
     Dates: start: 20201001, end: 20201001
  6. DOCETAXEL [Suspect]
     Active Substance: DOCETAXEL
     Dosage: 136.2 MG
     Route: 041
     Dates: start: 20201022, end: 20201022
  7. DOCETAXEL [Suspect]
     Active Substance: DOCETAXEL
     Dosage: 132.75 MG
     Route: 041
     Dates: start: 20201112, end: 20201112
  8. DOCETAXEL [Suspect]
     Active Substance: DOCETAXEL
     Dosage: 132.75 MG
     Route: 041
     Dates: start: 20201203, end: 20201203
  9. DECADRON [Concomitant]
     Active Substance: DEXAMETHASONE
     Indication: Prophylaxis
     Dosage: 2 TABLETS, QD (ORAL ADMINISTRATION FOR 3 DAYS FROM THE DAY BEFORE CHEMOTHERAPY)
     Route: 048
     Dates: start: 20200715
  10. DEXAMETHASONE SODIUM PHOSPHATE [Concomitant]
     Active Substance: DEXAMETHASONE SODIUM PHOSPHATE
     Indication: Premedication
     Dosage: 6.6 MG (AT EACH CHEMOTHERAPY)
     Route: 042
     Dates: start: 20200716
  11. LANSOPRAZOLE [Concomitant]
     Active Substance: LANSOPRAZOLE
     Indication: Gastritis prophylaxis
     Dosage: 1 DF, QD
     Route: 048
     Dates: start: 20200630
  12. ACETAMINOPHEN [Concomitant]
     Active Substance: ACETAMINOPHEN
     Indication: Tumour pain
     Dosage: 1 DF, PRN
     Route: 048
     Dates: start: 20190823
  13. FLUOCINONIDE [Concomitant]
     Active Substance: FLUOCINONIDE
     Indication: Pruritus
     Dosage: 2 TO 3 TIMES A DAY
     Route: 061
     Dates: start: 20190906
  14. BEPOTASTINE BESILATE OD [Concomitant]
     Indication: Pruritus
     Dosage: 1 DF, BID
     Route: 048
     Dates: start: 20200609
  15. LOXOPROFEN SODIUM [Concomitant]
     Active Substance: LOXOPROFEN SODIUM
     Indication: Tumour pain
     Dosage: 1 DF, PRN
     Route: 048
     Dates: start: 201903
  16. REBAMIPIDE [Concomitant]
     Active Substance: REBAMIPIDE
     Indication: Gastritis prophylaxis
     Dosage: 1 DF, PRN
     Route: 048
     Dates: start: 20190627
  17. CARBAZOCHROME SULFONATE NA [Concomitant]
     Indication: Lung adenocarcinoma
     Dosage: 1 DF, TID
     Route: 048
     Dates: start: 20200714
  18. TRANEXAMIC ACID [Concomitant]
     Active Substance: TRANEXAMIC ACID
     Indication: Lung adenocarcinoma
     Dosage: 2 DF, TID
     Route: 048
     Dates: start: 20200714
  19. TRAMADOL HYDROCHLORIDE [Concomitant]
     Active Substance: TRAMADOL HYDROCHLORIDE
     Indication: Tumour pain
     Dosage: 1 TABLET, QD
     Route: 048
     Dates: start: 20200720
  20. FERROUS SULFATE [Concomitant]
     Active Substance: FERROUS SULFATE
     Indication: Anaemia
     Dosage: 1 TABLET, QD
     Route: 048
     Dates: start: 20200917
  21. LEVOFLOXACIN HEMIHYDRATE [Concomitant]
     Active Substance: LEVOFLOXACIN
     Indication: Dry eye
     Dosage: UNK, TID
     Route: 047
     Dates: start: 20201105
  22. HEPARINOID [Concomitant]
     Indication: Dry skin
     Dosage: SEVERAL TIMES A DAY
     Route: 062
     Dates: start: 20201203
  23. HEPARINOID [Concomitant]
     Indication: Dry skin
     Dosage: SEVERAL TIMES A DAY
     Route: 062
     Dates: start: 20201203
  24. HACHIAZULE [SODIUM BICARBONATE;SODIUM GUALENATE] [Concomitant]
     Indication: Anaemia
     Dosage: 1 DF, QD
     Route: 048
     Dates: start: 20200724
  25. PEGFILGRASTIM [Concomitant]
     Active Substance: PEGFILGRASTIM
     Indication: Prophylaxis
     Dosage: 3.6 MG AFTER CHEMOTHERAPY
     Route: 058
     Dates: start: 20200808
  26. ACETAMINOPHEN [Concomitant]
     Active Substance: ACETAMINOPHEN
     Indication: Product used for unknown indication
     Dosage: UNK
     Route: 042
     Dates: start: 20201229, end: 20210105
  27. AMPICILLIN SODIUM\SULBACTAM SODIUM [Concomitant]
     Active Substance: AMPICILLIN SODIUM\SULBACTAM SODIUM
     Indication: Product used for unknown indication
     Dosage: UNK
     Route: 042
     Dates: start: 20201229, end: 20210101
  28. AMINO ACIDS\DEXTROSE\ELECTROLYTES NOS\VITAMINS [Concomitant]
     Active Substance: AMINO ACIDS\DEXTROSE\ELECTROLYTES NOS\VITAMINS
     Indication: Product used for unknown indication
     Dosage: UNK
     Route: 042
     Dates: start: 20201229, end: 20210101
  29. SOLDEM 3A [Concomitant]
     Active Substance: CARBOHYDRATES\POTASSIUM CHLORIDE\SODIUM CHLORIDE\SODIUM LACTATE
     Indication: Product used for unknown indication
     Dosage: UNK
     Route: 042
     Dates: start: 20201229, end: 20201229

REACTIONS (1)
  - Abdominal abscess [Recovered/Resolved]

NARRATIVE: CASE EVENT DATE: 20201229
